FAERS Safety Report 6310635-7 (Version None)
Quarter: 2009Q3

REPORT INFORMATION
  Report Type: 
  Country: None (occurrence: None)
  Receive Date: 20090810
  Receipt Date: 20090727
  Transmission Date: 20100115
  Serious: Yes (Hospitalization)
  Sender: FDA-Public Use
  Company Number: 8049836

PATIENT
  Age: 60 Year
  Sex: Male

DRUGS (6)
  1. PREDNISOLONE [Suspect]
     Indication: RENAL TRANSPLANT
     Dosage: 10 MG 1/D
  2. CYCLOSPORINE [Suspect]
     Indication: RENAL TRANSPLANT
     Dosage: 50 MG 2/D
     Dates: start: 19890101
  3. CYCLOPHOSPHAMIDE [Concomitant]
  4. DOXORUBICIN HCL [Concomitant]
  5. ONCOVIN [Concomitant]
  6. PREDNISONE [Concomitant]

REACTIONS (16)
  - ACINETOBACTER INFECTION [None]
  - ADHESION [None]
  - BILIARY DILATATION [None]
  - BLOOD CULTURE POSITIVE [None]
  - CYST ASPIRATION ABNORMAL [None]
  - DISSEMINATED INTRAVASCULAR COAGULATION [None]
  - ESCHERICHIA SEPSIS [None]
  - HEPATIC ATROPHY [None]
  - HEPATIC CYST [None]
  - JAUNDICE [None]
  - MALAISE [None]
  - PSEUDOMONAS INFECTION [None]
  - PURULENCE [None]
  - RENAL HAEMORRHAGE [None]
  - UMBILICAL HERNIA [None]
  - WOUND INFECTION [None]
